FAERS Safety Report 5396638-8 (Version None)
Quarter: 2007Q3

REPORT INFORMATION
  Report Type: 
  Country: None (occurrence: None)
  Receive Date: 20070725
  Receipt Date: 20070718
  Transmission Date: 20080115
  Serious: Yes (Death, Hospitalization)
  Sender: FDA-Public Use
  Company Number: A0664871A

PATIENT
  Age: 87 Year
  Sex: Male

DRUGS (7)
  1. COREG CR [Suspect]
     Dosage: 12.5MG PER DAY
     Route: 048
     Dates: start: 20070601, end: 20070601
  2. LOPRESSOR [Suspect]
  3. NORVASC [Suspect]
  4. INSULIN [Concomitant]
  5. FLOMAX [Concomitant]
  6. BLOOD THINNER [Concomitant]
  7. HEART MEDICATION [Concomitant]

REACTIONS (3)
  - CHEST PAIN [None]
  - DEATH [None]
  - VASCULAR GRAFT [None]
